FAERS Safety Report 18732651 (Version 3)
Quarter: 2021Q1

REPORT INFORMATION
  Report Type: Report from Study
  Country: None (occurrence: DE)
  Receive Date: 20210113
  Receipt Date: 20210325
  Transmission Date: 20210419
  Serious: Yes (Other)
  Sender: FDA-Public Use
  Company Number: DE-ABBVIE-21K-062-3727473-00

PATIENT
  Age: 69 Year
  Sex: Male
  Weight: 79 kg

DRUGS (1)
  1. SKYRIZI [Suspect]
     Active Substance: RISANKIZUMAB-RZAA
     Indication: PSORIASIS
     Route: 058
     Dates: start: 20200610

REACTIONS (3)
  - Vision blurred [Recovering/Resolving]
  - Ophthalmic vein thrombosis [Recovering/Resolving]
  - Blindness [Unknown]

NARRATIVE: CASE EVENT DATE: 20201010
